FAERS Safety Report 19863843 (Version 3)
Quarter: 2021Q4

REPORT INFORMATION
  Report Type: Report from Study
  Country: AU (occurrence: AU)
  Receive Date: 20210921
  Receipt Date: 20211008
  Transmission Date: 20220303
  Serious: Yes (Hospitalization)
  Sender: FDA-Public Use
  Company Number: AU-BAYER-2021-188449

PATIENT
  Age: 71 Year
  Sex: Male
  Weight: 58 kg

DRUGS (1)
  1. REGORAFENIB [Suspect]
     Active Substance: REGORAFENIB
     Indication: Gastrooesophageal cancer
     Dosage: 120 MG, QD
     Route: 048
     Dates: start: 20210511, end: 20210802

REACTIONS (1)
  - Hyperthyroidism [Recovered/Resolved with Sequelae]

NARRATIVE: CASE EVENT DATE: 20210811
